FAERS Safety Report 21450599 (Version 1)
Quarter: 2022Q4

REPORT INFORMATION
  Report Type: Spontaneous
  Country: US (occurrence: US)
  Receive Date: 20221013
  Receipt Date: 20221013
  Transmission Date: 20230112
  Serious: Yes (Other)
  Sender: FDA-Public Use
  Company Number: US-HRAPH01-2022001122

PATIENT
  Age: 32 Year
  Sex: Female
  Weight: 79.4 kg

DRUGS (1)
  1. ELLA [Suspect]
     Active Substance: ULIPRISTAL ACETATE
     Indication: Post coital contraception
     Dosage: ONE RX TAB
     Route: 048
     Dates: start: 20220912, end: 20220912

REACTIONS (3)
  - Haemorrhage in pregnancy [Recovered/Resolved]
  - Unintended pregnancy [Not Recovered/Not Resolved]
  - Drug ineffective [Recovered/Resolved]

NARRATIVE: CASE EVENT DATE: 20220912
